FAERS Safety Report 6341740-7 (Version None)
Quarter: 2009Q3

REPORT INFORMATION
  Report Type: 
  Country: None (occurrence: None)
  Receive Date: 20090904
  Receipt Date: 20090824
  Transmission Date: 20100115
  Serious: Yes (Other)
  Sender: FDA-Public Use
  Company Number: BR-PFIZER INC-2009259156

PATIENT

DRUGS (1)
  1. DETRUSITOL LA [Suspect]
     Dosage: 4 MG, UNK
     Route: 048

REACTIONS (5)
  - ABDOMINAL PAIN UPPER [None]
  - BLINDNESS [None]
  - DIZZINESS [None]
  - HEADACHE [None]
  - NAUSEA [None]
